FAERS Safety Report 8543755 (Version 3)
Quarter: 2014Q1

REPORT INFORMATION
  Report Type: Spontaneous
  Country: IL (occurrence: IL)
  Receive Date: 20120503
  Receipt Date: 20140226
  Transmission Date: 20141002
  Serious: Yes (Other)
  Sender: FDA-Public Use
  Company Number: IL-AMGEN-ISRSP2012027222

PATIENT
  Age: 70 Year
  Sex: Male
  Weight: 50 kg

DRUGS (7)
  1. NPLATE [Suspect]
     Indication: IMMUNE THROMBOCYTOPENIC PURPURA
     Dosage: 8 MUG/KG, UNK
     Route: 065
     Dates: start: 20110915, end: 20120403
  2. LORIVAN [Concomitant]
  3. OMEPRA [Concomitant]
  4. BONDORMIN [Concomitant]
  5. LANTON [Concomitant]
  6. VABEN [Concomitant]
  7. ALPROX [Concomitant]

REACTIONS (2)
  - Haemoglobin decreased [Not Recovered/Not Resolved]
  - Platelet count decreased [Not Recovered/Not Resolved]
